FAERS Safety Report 4944124-9 (Version None)
Quarter: 2006Q1

REPORT INFORMATION
  Report Type: 
  Country: None (occurrence: None)
  Receive Date: 20060309
  Receipt Date: 20060223
  Transmission Date: 20060701
  Serious: Yes (Death, Other)
  Sender: FDA-Public Use
  Company Number: 2006-US-00838

PATIENT
  Age: 70 Year
  Sex: Female

DRUGS (1)
  1. CLOZAPINE [Suspect]
     Dosage: 125 MG, QD, ORAL
     Route: 048
     Dates: start: 20050901, end: 20060201

REACTIONS (1)
  - LUNG NEOPLASM MALIGNANT [None]
